FAERS Safety Report 23187989 (Version 1)
Quarter: 2023Q4

REPORT INFORMATION
  Report Type: Spontaneous
  Country: US (occurrence: US)
  Receive Date: 20231115
  Receipt Date: 20231115
  Transmission Date: 20240109
  Serious: No
  Sender: FDA-Public Use
  Company Number: US-PFIZER INC-202300359947

PATIENT
  Age: 4 Year
  Sex: Male

DRUGS (1)
  1. OXBRYTA [Suspect]
     Active Substance: VOXELOTOR
     Dosage: 900 MG, 1X/DAY, [300MG, 3 TABLETS FOR ORAL SUSPENSION ONCE DAILY, ORALLY]
     Route: 048

REACTIONS (1)
  - Vomiting [Unknown]
